FAERS Safety Report 6706143-1 (Version None)
Quarter: 2010Q2

REPORT INFORMATION
  Report Type: 
  Country: None (occurrence: None)
  Receive Date: 20100503
  Receipt Date: 20100422
  Transmission Date: 20101027
  Serious: Yes (Other)
  Sender: FDA-Public Use
  Company Number: GB-PFIZER INC-2010050841

PATIENT
  Age: 61 Year
  Sex: Female
  Weight: 60 kg

DRUGS (2)
  1. DOXYCYCLINE MONOHYDRATE [Suspect]
     Indication: LOWER RESPIRATORY TRACT INFECTION
     Dosage: 100 MG, UNK
     Route: 048
     Dates: start: 20100105, end: 20100112
  2. PREMIQUE [Concomitant]
     Indication: MENOPAUSAL SYMPTOMS
     Dosage: 1 DF, 1X/DAY

REACTIONS (3)
  - NAIL DISORDER [None]
  - ONYCHOMADESIS [None]
  - SKIN EXFOLIATION [None]
